FAERS Safety Report 16771433 (Version 1)
Quarter: 2019Q3

REPORT INFORMATION
  Report Type: Spontaneous
  Country: GB (occurrence: GB)
  Receive Date: 20190904
  Receipt Date: 20190904
  Transmission Date: 20191005
  Serious: Yes (Hospitalization, Other)
  Sender: FDA-Public Use
  Company Number: GB-TEVA-2019-GB-1101040

PATIENT
  Age: 50 Year
  Sex: Female
  Weight: 50 kg

DRUGS (3)
  1. HORMONE REPLACEMENT THERAPY [Concomitant]
     Active Substance: UNSPECIFIED INGREDIENT
  2. PROGESTOGEN [Concomitant]
  3. NITROFURANTOIN. [Suspect]
     Active Substance: NITROFURANTOIN
     Indication: URINARY TRACT INFECTION
     Dosage: 2 DOSAGE FORM
     Route: 048
     Dates: start: 20190624, end: 20190627

REACTIONS (5)
  - Constipation [Unknown]
  - Arthralgia [Recovered/Resolved with Sequelae]
  - Muscle spasms [Recovered/Resolved]
  - Hypoaesthesia [Recovered/Resolved]
  - Drug ineffective [Unknown]

NARRATIVE: CASE EVENT DATE: 20190624
